FAERS Safety Report 4855387-2 (Version None)
Quarter: 2005Q4

REPORT INFORMATION
  Report Type: 
  Country: None (occurrence: None)
  Receive Date: 20051125
  Receipt Date: 20050204
  Transmission Date: 20060501
  Serious: Yes (Hospitalization)
  Sender: FDA-Public Use
  Company Number: US-JNJFOC-20041102279

PATIENT
  Age: 80 Year
  Sex: Female
  Weight: 71.6683 kg

DRUGS (11)
  1. LEVAQUIN [Suspect]
     Indication: RESPIRATORY DISORDER
     Dosage: 500 MG, 1 IN 1 DAY, ORAL
     Route: 048
     Dates: start: 20040930, end: 20041006
  2. WARFARIN [Concomitant]
  3. DIABETA [Concomitant]
  4. AVANDIA [Concomitant]
  5. LASIX [Concomitant]
  6. MAGNESIUM [Concomitant]
  7. FOLATE (FOLATE SODIUM) [Concomitant]
  8. ALLOPRINOL (ALLOPURINOL) [Concomitant]
  9. ALTACE [Concomitant]
  10. PRAVACHOL [Concomitant]
  11. CELEBREX [Concomitant]

REACTIONS (9)
  - ABDOMINAL PAIN UPPER [None]
  - DIVERTICULITIS [None]
  - DIZZINESS [None]
  - EPISTAXIS [None]
  - FAECES DISCOLOURED [None]
  - HAEMATOCRIT DECREASED [None]
  - HAEMOGLOBIN DECREASED [None]
  - INTERNATIONAL NORMALISED RATIO INCREASED [None]
  - VISION BLURRED [None]
